FAERS Safety Report 9179233 (Version 1)
Quarter: 2013Q1

REPORT INFORMATION
  Report Type: Spontaneous
  Country: FR (occurrence: FR)
  Receive Date: 20130321
  Receipt Date: 20130321
  Transmission Date: 20140127
  Serious: Yes (Hospitalization)
  Sender: FDA-Public Use
  Company Number: FR-GLAXOSMITHKLINE-B0869135A

PATIENT
  Age: 60 None
  Sex: Female

DRUGS (12)
  1. ZINNAT [Suspect]
     Indication: NASOPHARYNGITIS
     Route: 048
     Dates: start: 201209, end: 201209
  2. FLAGYL [Suspect]
     Indication: PSEUDOMEMBRANOUS COLITIS
     Route: 048
     Dates: start: 201211, end: 201211
  3. NOROXINE [Suspect]
     Indication: URINARY TRACT INFECTION
     Route: 048
     Dates: start: 201210, end: 201210
  4. NIBIOL [Suspect]
     Indication: URINARY TRACT INFECTION
     Route: 048
     Dates: start: 201210, end: 201210
  5. BIPRETERAX [Concomitant]
     Dates: start: 2004
  6. LERCAN [Concomitant]
     Dates: start: 2004
  7. DEROXAT [Concomitant]
  8. ZELITREX [Concomitant]
  9. ZOVIRAX [Concomitant]
  10. ESTREVA [Concomitant]
  11. DUPHASTON [Concomitant]
  12. INEXIUM [Concomitant]

REACTIONS (7)
  - Hepatitis [Recovered/Resolved]
  - Jaundice [Recovered/Resolved]
  - Abdominal pain upper [Unknown]
  - Pyrexia [Unknown]
  - Vomiting [Recovered/Resolved]
  - Tremor [Recovered/Resolved]
  - Pseudomembranous colitis [Recovered/Resolved]
